FAERS Safety Report 15109166 (Version 1)
Quarter: 2018Q3

REPORT INFORMATION
  Report Type: Spontaneous
  Country: JP (occurrence: JP)
  Receive Date: 20180705
  Receipt Date: 20180705
  Transmission Date: 20181010
  Serious: Yes (Death, Other)
  Sender: FDA-Public Use
  Company Number: JP-ROCHE-2101655

PATIENT
  Age: 86 Year
  Sex: Male
  Weight: 43 kg

DRUGS (6)
  1. PREDNISOLONE. [Suspect]
     Active Substance: PREDNISOLONE
     Indication: PRODUCT USED FOR UNKNOWN INDICATION
     Route: 048
     Dates: end: 20180309
  2. METHOTREXATE. [Concomitant]
     Active Substance: METHOTREXATE
     Indication: RHEUMATOID ARTHRITIS
     Route: 048
  3. PRALIA [Concomitant]
     Active Substance: DENOSUMAB
     Route: 065
  4. LOXONIN [Concomitant]
     Active Substance: LOXOPROFEN SODIUM
     Route: 048
     Dates: end: 20180309
  5. ACTEMRA [Suspect]
     Active Substance: TOCILIZUMAB
     Indication: RHEUMATOID ARTHRITIS
     Dosage: MOST RECENT DOSE ON 05/MAR/2018
     Route: 058
     Dates: start: 20171211
  6. ENALAPRIL MALEATE. [Concomitant]
     Active Substance: ENALAPRIL MALEATE
     Route: 048
     Dates: end: 20180309

REACTIONS (8)
  - Arthritis bacterial [Fatal]
  - Genital infection [Unknown]
  - Abscess limb [Unknown]
  - Staphylococcus test positive [Unknown]
  - Disseminated intravascular coagulation [Unknown]
  - Cardiac failure [Unknown]
  - Joint swelling [Unknown]
  - Sepsis [Fatal]

NARRATIVE: CASE EVENT DATE: 20180309
